FAERS Safety Report 7392813-1 (Version None)
Quarter: 2011Q1

REPORT INFORMATION
  Report Type: 
  Country: None (occurrence: None)
  Receive Date: 20110330
  Receipt Date: 20110330
  Transmission Date: 20110831
  Serious: Yes (Other)
  Sender: FDA-Public Use
  Company Number: None

PATIENT
  Age: 41 Year
  Sex: Female
  Weight: 62.5964 kg

DRUGS (1)
  1. BOTOX [Suspect]
     Dosage: 40 UNITS 1 TIME

REACTIONS (4)
  - NAUSEA [None]
  - HEADACHE [None]
  - INFLUENZA LIKE ILLNESS [None]
  - NO THERAPEUTIC RESPONSE [None]
